FAERS Safety Report 8970850 (Version 1)
Quarter: 2012Q4

REPORT INFORMATION
  Report Type: 
  Country: US (occurrence: US)
  Receive Date: 20121218
  Receipt Date: 20121218
  Transmission Date: 20130627
  Serious: Yes (Hospitalization, Other)
  Sender: FDA-Public Use
  Company Number: US-ELI_LILLY_AND_COMPANY-US201212004508

PATIENT
  Sex: Female

DRUGS (2)
  1. HUMALOG LISPRO [Suspect]
     Indication: TYPE 2 DIABETES MELLITUS
     Dosage: 5 u, tid
     Dates: start: 201207
  2. LANTUS [Concomitant]
     Dosage: 55 u, each evening

REACTIONS (2)
  - Cerebrovascular accident [Unknown]
  - Dizziness [Not Recovered/Not Resolved]
